FAERS Safety Report 8504849-5 (Version None)
Quarter: 2012Q2

REPORT INFORMATION
  Report Type: 
  Country: None (occurrence: None)
  Receive Date: 20120405
  Receipt Date: 20100920
  Transmission Date: 20120825
  Serious: Yes (Hospitalization)
  Sender: FDA-Public Use
  Company Number: PHHY2010US59157

PATIENT
  Age: 66 Year
  Sex: Female

DRUGS (5)
  1. SYNTHROID [Concomitant]
  2. NATRIUM BICARBONAT (SODIUM BICARBONATE) [Concomitant]
  3. CALCIUM D (CALCIUM, COLECALCIFEROL) [Concomitant]
  4. RECLAST [Suspect]
     Dosage: 5 MG, ONCE YEARLY, INTRAVENOUS
     Route: 042
     Dates: start: 20100813
  5. NEURONTIN [Concomitant]

REACTIONS (6)
  - RASH [None]
  - PYREXIA [None]
  - RENAL FAILURE ACUTE [None]
  - URINE OUTPUT DECREASED [None]
  - DEHYDRATION [None]
  - CHILLS [None]
